FAERS Safety Report 15249706 (Version 1)
Quarter: 2018Q3

REPORT INFORMATION
  Report Type: Spontaneous
  Country: US (occurrence: US)
  Receive Date: 20180716
  Receipt Date: 20180716
  Transmission Date: 20181010
  Serious: No
  Sender: FDA-Public Use
  Company Number: None

PATIENT
  Age: 71 Year
  Sex: Female
  Weight: 69.3 kg

DRUGS (1)
  1. CARVEDILOL 12.5 MG TAB MYLA [Suspect]
     Active Substance: CARVEDILOL
     Indication: ARRHYTHMIA
     Dosage: ?          QUANTITY:1 TABLET(S);?
     Route: 048
     Dates: start: 20180712, end: 20180713

REACTIONS (5)
  - Product substitution issue [None]
  - Therapy cessation [None]
  - Fatigue [None]
  - Somnolence [None]
  - Dysstasia [None]

NARRATIVE: CASE EVENT DATE: 20180712
